FAERS Safety Report 11006710 (Version 1)
Quarter: 2015Q2

REPORT INFORMATION
  Report Type: Spontaneous
  Country: US (occurrence: US)
  Receive Date: 20150409
  Receipt Date: 20150409
  Transmission Date: 20150821
  Serious: No
  Sender: FDA-Public Use
  Company Number: US-ALLERGAN-1422018US

PATIENT
  Age: 54 Year
  Sex: Female

DRUGS (1)
  1. LATISSE [Suspect]
     Active Substance: BIMATOPROST
     Indication: PRODUCT USED FOR UNKNOWN INDICATION
     Dosage: UNK
     Dates: start: 20141014, end: 20141014

REACTIONS (2)
  - Drug hypersensitivity [Unknown]
  - Lacrimation increased [Unknown]

NARRATIVE: CASE EVENT DATE: 20141014
